FAERS Safety Report 4348519-6 (Version None)
Quarter: 2004Q2

REPORT INFORMATION
  Report Type: 
  Country: None (occurrence: None)
  Receive Date: 20040427
  Receipt Date: 20040419
  Transmission Date: 20050107
  Serious: Yes (Life-Threatening)
  Sender: FDA-Public Use
  Company Number: GB-ROCHE-364950

PATIENT
  Age: 70 Year
  Sex: Male

DRUGS (8)
  1. CEFTRIAXONE SODIUM [Suspect]
     Route: 042
     Dates: start: 20040108, end: 20040109
  2. TEICOPLANIN [Concomitant]
     Route: 042
     Dates: start: 20040108
  3. METRONIDAZOLE [Concomitant]
     Route: 048
     Dates: start: 20040108
  4. XATRAL [Concomitant]
     Route: 048
  5. ASPIRIN [Concomitant]
  6. IBUPROFEN [Concomitant]
  7. DHC CONTINUS [Concomitant]
  8. ACETAMINOPHEN [Concomitant]

REACTIONS (4)
  - ANAPHYLACTIC REACTION [None]
  - HEART RATE DECREASED [None]
  - TACHYCARDIA [None]
  - TREMOR [None]
